FAERS Safety Report 13463356 (Version 1)
Quarter: 2017Q2

REPORT INFORMATION
  Report Type: Spontaneous
  Country: GB (occurrence: GB)
  Receive Date: 20170420
  Receipt Date: 20170420
  Transmission Date: 20170830
  Serious: Yes (Death)
  Sender: FDA-Public Use
  Company Number: GB-HQ SPECIALTY-GB-2017INT000115

PATIENT

DRUGS (21)
  1. ASPARAGINASE [Suspect]
     Active Substance: ASPARAGINASE
     Indication: ACUTE LYMPHOCYTIC LEUKAEMIA
     Dosage: 10000 UNITS/M2 ON DAY 17-28
     Route: 042
  2. METHOTREXATE. [Suspect]
     Active Substance: METHOTREXATE
     Dosage: 12 MG, ON DAYS 1, 8, 15, 22
     Route: 037
  3. DEXAMETHASONE. [Suspect]
     Active Substance: DEXAMETHASONE
     Indication: ACUTE LYMPHOCYTIC LEUKAEMIA
     Dosage: 10 MG/M2, DAYS 1-28 THEN TAPERED OVER 14 DAYS
     Route: 048
  4. PREDNISONE. [Suspect]
     Active Substance: PREDNISONE
     Indication: ACUTE LYMPHOCYTIC LEUKAEMIA
     Dosage: 30 MG/M2, TWICE DAILY ON DAYS 1-28 THEN TAPERED OVER 10-14 DAYS
     Route: 048
  5. CYCLOPHOSPHAMIDE. [Suspect]
     Active Substance: CYCLOPHOSPHAMIDE
     Dosage: 650 MG/M2, DAY 29
     Route: 042
  6. DEXAMETHASONE. [Suspect]
     Active Substance: DEXAMETHASONE
     Dosage: 10 MG/M2, DAYS 1-28 THEN TAPERED OVER 14 DAYS
     Route: 048
  7. FOLINIC ACID [Suspect]
     Active Substance: LEUCOVORIN
     Indication: ACUTE LYMPHOCYTIC LEUKAEMIA
     Dosage: 5 MG, THREE DAYS FOLLOWING EACH METHOTREXATE DOSE
     Route: 048
  8. TENIPOSIDE. [Suspect]
     Active Substance: TENIPOSIDE
     Indication: ACUTE LYMPHOCYTIC LEUKAEMIA
     Dosage: 60 MG/M2, DAYS 1-5
     Route: 042
  9. VINCRISTINE [Suspect]
     Active Substance: VINCRISTINE
     Indication: ACUTE LYMPHOCYTIC LEUKAEMIA
     Dosage: 1.4 MG/M2, MAXIMUM 2 MG, ON DAYS 1, 8, 15, 2
     Route: 042
  10. THIOGUANINE [Suspect]
     Active Substance: THIOGUANINE
     Indication: ACUTE LYMPHOCYTIC LEUKAEMIA
     Dosage: 60 MG/M2, DAYS 29-42
     Route: 048
  11. CYTARABINE. [Suspect]
     Active Substance: CYTARABINE
     Dosage: 75 MG/M2, DAYS 31-34, 38-41 (EIGHT WEEKS)
     Route: 042
  12. CYCLOPHOSPHAMIDE. [Suspect]
     Active Substance: CYCLOPHOSPHAMIDE
     Indication: ACUTE LYMPHOCYTIC LEUKAEMIA
     Dosage: 650 MG/M2, DAYS 1, 15, 28
     Route: 042
  13. CYTARABINE. [Suspect]
     Active Substance: CYTARABINE
     Indication: ACUTE LYMPHOCYTIC LEUKAEMIA
     Dosage: 75 MG/M2, DAYS 1-4, 8-11, 15-18, 22-25 (EIGHT WEEKS)
     Route: 042
  14. DAUNORUBICIN [Suspect]
     Active Substance: DAUNORUBICIN
     Dosage: 25 MG/M2, DAYS 1, 8, 15, 22
  15. MERCAPTOPURINE. [Suspect]
     Active Substance: MERCAPTOPURINE
     Indication: ACUTE LYMPHOCYTIC LEUKAEMIA
     Dosage: 60 MG/M2, ON DAYS 1-2 AND CRANIAL IRRADIATION
     Route: 048
  16. METHOTREXATE. [Suspect]
     Active Substance: METHOTREXATE
     Indication: ACUTE LYMPHOCYTIC LEUKAEMIA
     Dosage: 12 MG, ON DAY 17-28
     Route: 037
  17. METHOTREXATE. [Suspect]
     Active Substance: METHOTREXATE
     Dosage: 20 MG/M2, WEEKLY
  18. VINCRISTINE [Suspect]
     Active Substance: VINCRISTINE
     Dosage: 1.4 MG/M2, ON DAYS 1, 8, 15, 2
     Route: 042
  19. CYTARABINE. [Suspect]
     Active Substance: CYTARABINE
     Dosage: 75 MG/M2, DAYS 1-5 (FOUR WEEKS TOTAL)
     Route: 042
  20. DAUNORUBICIN [Suspect]
     Active Substance: DAUNORUBICIN
     Indication: ACUTE LYMPHOCYTIC LEUKAEMIA
     Dosage: 60 MG/M2, DAYS 1-3
     Route: 042
  21. MERCAPTOPURINE. [Suspect]
     Active Substance: MERCAPTOPURINE
     Dosage: 75 MG/M2, QD
     Route: 048

REACTIONS (1)
  - Bronchopulmonary aspergillosis [Fatal]
